FAERS Safety Report 6651789-2 (Version None)
Quarter: 2010Q1

REPORT INFORMATION
  Report Type: 
  Country: None (occurrence: None)
  Receive Date: 20100325
  Receipt Date: 20100315
  Transmission Date: 20100710
  Serious: Yes (Other)
  Sender: FDA-Public Use
  Company Number: US-JNJFOC-20100206669

PATIENT
  Sex: Male
  Weight: 112 kg

DRUGS (2)
  1. ACETAMINOPHEN [Suspect]
     Indication: ARTHRALGIA
     Route: 048
  2. ACETAMINOPHEN [Suspect]
     Indication: OSTEOARTHRITIS
     Route: 048

REACTIONS (1)
  - ERYTHEMA MULTIFORME [None]
